FAERS Safety Report 6380221-1 (Version None)
Quarter: 2009Q3

REPORT INFORMATION
  Report Type: 
  Country: None (occurrence: None)
  Receive Date: 20090921
  Receipt Date: 20090909
  Transmission Date: 20100115
  Serious: Yes (Life-Threatening, Other)
  Sender: FDA-Public Use
  Company Number: 2009AP003648

PATIENT
  Sex: Female

DRUGS (5)
  1. AMLODIPINE BESYLATE [Suspect]
     Indication: HYPERTENSION
     Dosage: 5 MG;; PO;
     Route: 048
     Dates: start: 20090729, end: 20090729
  2. ASPIRIN [Concomitant]
  3. LISINOPRIL [Concomitant]
  4. PREMARIN [Concomitant]
  5. SIMVATATIN (SIMVASTATIN) [Concomitant]

REACTIONS (1)
  - ANAPHYLACTIC REACTION [None]
